FAERS Safety Report 25993352 (Version 1)
Quarter: 2025Q4

REPORT INFORMATION
  Report Type: Spontaneous
  Country: US (occurrence: US)
  Receive Date: 20251104
  Receipt Date: 20251104
  Transmission Date: 20260117
  Serious: No
  Sender: MARKSANS PHARMA LIMITED
  Company Number: US-MARKSANS PHARMA LIMITED-MPL202500104

PATIENT

DRUGS (1)
  1. HEMORRHOIDAL COOLING [Suspect]
     Active Substance: PHENYLEPHRINE HYDROCHLORIDE\WITCH HAZEL
     Indication: Anorectal discomfort
     Dosage: UNK, 1 APPLICATION
     Route: 061

REACTIONS (1)
  - Drug ineffective [Unknown]
